FAERS Safety Report 17884120 (Version 1)
Quarter: 2020Q2

REPORT INFORMATION
  Report Type: Spontaneous
  Country: US (occurrence: US)
  Receive Date: 20200610
  Receipt Date: 20200610
  Transmission Date: 20200714
  Serious: Yes (Other)
  Sender: FDA-Public Use
  Company Number: None

PATIENT
  Age: 60 Year
  Sex: Male
  Weight: 84 kg

DRUGS (1)
  1. YESCARTA [Suspect]
     Active Substance: AXICABTAGENE CILOLEUCEL
     Dates: start: 20200501, end: 20200501

REACTIONS (11)
  - Memory impairment [None]
  - Abdominal pain [None]
  - Pulmonary mass [None]
  - Diarrhoea [None]
  - Tachycardia [None]
  - Atelectasis [None]
  - Hypotension [None]
  - Diffuse large B-cell lymphoma recurrent [None]
  - Disease progression [None]
  - Pyrexia [None]
  - Disturbance in attention [None]

NARRATIVE: CASE EVENT DATE: 20200501
